FAERS Safety Report 23557827 (Version 1)
Quarter: 2024Q1

REPORT INFORMATION
  Report Type: Spontaneous
  Country: CA (occurrence: CA)
  Receive Date: 20240223
  Receipt Date: 20240223
  Transmission Date: 20240409
  Serious: Yes (Other)
  Sender: FDA-Public Use
  Company Number: CA-AstraZeneca-2020SF02676

PATIENT
  Age: 57 Year
  Sex: Female

DRUGS (18)
  1. CANDESARTAN [Suspect]
     Active Substance: CANDESARTAN
     Indication: Product used for unknown indication
     Dosage: DOSAGE TEXT: 8 MILLIGRAM, QD
     Route: 048
  2. CANDESARTAN [Suspect]
     Active Substance: CANDESARTAN
     Indication: Product used for unknown indication
     Dosage: DOSAGE TEXT: 8 MILLIGRAM, BID
     Route: 065
  3. ISOPTIN [Concomitant]
     Active Substance: VERAPAMIL HYDROCHLORIDE
     Indication: Product used for unknown indication
     Dosage: UNK
     Route: 065
  4. ISOPTIN [Concomitant]
     Active Substance: VERAPAMIL HYDROCHLORIDE
     Indication: Product used for unknown indication
     Dosage: DOSAGE TEXT: UNK
     Route: 065
  5. LYRICA [Concomitant]
     Active Substance: PREGABALIN
     Dosage: UNK
  6. LYRICA [Concomitant]
     Active Substance: PREGABALIN
     Dosage: DOSAGE TEXT: UNK
  7. AMOXICILLIN\CLAVULANIC ACID [Suspect]
     Active Substance: AMOXICILLIN\CLAVULANIC ACID
     Indication: Nasal discharge discolouration
     Dosage: UNK
     Route: 065
  8. AMOXICILLIN [Suspect]
     Active Substance: AMOXICILLIN
     Indication: Nasal discharge discolouration
     Dosage: DOSAGE TEXT: UNK
     Route: 065
  9. OMALIZUMAB [Suspect]
     Active Substance: OMALIZUMAB
     Indication: Asthma
     Dosage: UNK
     Route: 058
  10. OMALIZUMAB [Suspect]
     Active Substance: OMALIZUMAB
     Indication: Asthma
     Dosage: DOSAGE TEXT: UNK
     Route: 058
  11. OMALIZUMAB [Suspect]
     Active Substance: OMALIZUMAB
     Indication: Asthma
     Dosage: DOSAGE TEXT: 300 MILLIGRAM
     Route: 058
     Dates: start: 20200103
  12. OMALIZUMAB [Suspect]
     Active Substance: OMALIZUMAB
     Indication: Asthma
     Dosage: DOSAGE TEXT: 300 MILLIGRAM
     Route: 058
  13. PULMICORT TURBUHALER [Concomitant]
     Active Substance: BUDESONIDE
     Indication: Product used for unknown indication
     Dosage: DOSAGE TEXT: UNK UNK, QD
     Route: 065
  14. CETIRIZINE HYDROCHLORIDE [Concomitant]
     Active Substance: CETIRIZINE HYDROCHLORIDE
     Indication: Product used for unknown indication
     Dosage: DOSAGE TEXT: UNK UNK, QD
     Route: 065
  15. RIVOTRIL [Concomitant]
     Active Substance: CLONAZEPAM
     Indication: Product used for unknown indication
     Dosage: UNK
     Route: 065
  16. RIVOTRIL [Concomitant]
     Active Substance: CLONAZEPAM
     Indication: Product used for unknown indication
     Dosage: DOSAGE TEXT: UNK
     Route: 065
  17. SINGULAIR [Concomitant]
     Active Substance: MONTELUKAST SODIUM
     Indication: Product used for unknown indication
     Dosage: DOSAGE TEXT: UNK UNK, QD
     Route: 065
  18. SYMBICORT [Concomitant]
     Active Substance: BUDESONIDE\FORMOTEROL FUMARATE DIHYDRATE
     Indication: Asthma
     Dosage: DOSAGE TEXT: UNK UNK, BID
     Route: 065

REACTIONS (51)
  - Asthma [Not Recovered/Not Resolved]
  - Injection site pain [Recovered/Resolved]
  - Lacrimation increased [Recovering/Resolving]
  - Migraine [Unknown]
  - Mobility decreased [Unknown]
  - Nasal congestion [Recovering/Resolving]
  - Nasal discharge discolouration [Recovered/Resolved]
  - Nasal oedema [Unknown]
  - Nasal polyps [Unknown]
  - Nasopharyngitis [Recovering/Resolving]
  - Productive cough [Unknown]
  - Respiratory disorder [Not Recovered/Not Resolved]
  - Rhinorrhoea [Recovering/Resolving]
  - Seasonal allergy [Unknown]
  - Sensitivity to weather change [Unknown]
  - Sinus congestion [Unknown]
  - Sinus disorder [Recovering/Resolving]
  - Sinus pain [Recovering/Resolving]
  - Sinus polyp [Recovered/Resolved]
  - Sinusitis [Unknown]
  - Stress [Unknown]
  - Blood pressure diastolic increased [Unknown]
  - Upper limb fracture [Unknown]
  - Viral infection [Not Recovered/Not Resolved]
  - Wrist fracture [Unknown]
  - Drug ineffective [Unknown]
  - Chills [Not Recovered/Not Resolved]
  - Discomfort [Not Recovered/Not Resolved]
  - Neck pain [Not Recovered/Not Resolved]
  - Nerve compression [Not Recovered/Not Resolved]
  - Osteoarthritis [Not Recovered/Not Resolved]
  - Pain [Not Recovered/Not Resolved]
  - Choking sensation [Unknown]
  - Sleep apnoea syndrome [Not Recovered/Not Resolved]
  - Throat clearing [Not Recovered/Not Resolved]
  - Vomiting [Unknown]
  - Insomnia [Unknown]
  - Dyspnoea [Recovering/Resolving]
  - Myalgia [Recovering/Resolving]
  - Nausea [Unknown]
  - Pyrexia [Recovering/Resolving]
  - Back pain [Unknown]
  - Cough [Recovering/Resolving]
  - Dyspnoea exertional [Unknown]
  - Hypersensitivity [Unknown]
  - Headache [Recovering/Resolving]
  - Dizziness [Not Recovered/Not Resolved]
  - Ear pain [Unknown]
  - Fatigue [Recovering/Resolving]
  - Inflammation [Recovering/Resolving]
  - Influenza [Recovering/Resolving]

NARRATIVE: CASE EVENT DATE: 20170101
